FAERS Safety Report 7488245-8 (Version None)
Quarter: 2011Q2

REPORT INFORMATION
  Report Type: 
  Country: None (occurrence: None)
  Receive Date: 20110518
  Receipt Date: 20110513
  Transmission Date: 20111010
  Serious: Yes (Death, Other)
  Sender: FDA-Public Use
  Company Number: US-ROCHE-777624

PATIENT
  Age: 89 Year
  Sex: Male

DRUGS (3)
  1. SPIRIVA [Suspect]
     Route: 065
  2. ROCEPHIN [Suspect]
     Route: 065
  3. ADVAIR DISKUS 100/50 [Suspect]
     Route: 065

REACTIONS (4)
  - DEATH [None]
  - MYASTHENIA GRAVIS [None]
  - CHRONIC OBSTRUCTIVE PULMONARY DISEASE [None]
  - PNEUMONIA [None]
